FAERS Safety Report 20574501 (Version 1)
Quarter: 2022Q1

REPORT INFORMATION
  Report Type: Spontaneous
  Country: US (occurrence: US)
  Receive Date: 20220309
  Receipt Date: 20220309
  Transmission Date: 20220424
  Serious: Yes (Other)
  Sender: FDA-Public Use
  Company Number: US-Blueprint Medicines Corporation-SP-US-2022-000599

PATIENT
  Sex: Male

DRUGS (1)
  1. AYVAKIT [Suspect]
     Active Substance: AVAPRITINIB
     Indication: Gastrointestinal stromal tumour
     Route: 048
     Dates: start: 20191015

REACTIONS (16)
  - Haematochezia [Unknown]
  - Neoplasm [Unknown]
  - Polyp [Unknown]
  - Skin disorder [Unknown]
  - Flatulence [Unknown]
  - Feeling abnormal [Unknown]
  - Rhinorrhoea [Unknown]
  - Drug ineffective [Unknown]
  - Diarrhoea [Unknown]
  - Vomiting [Unknown]
  - Memory impairment [Unknown]
  - Dizziness [Unknown]
  - Haemorrhoids [Unknown]
  - Oncologic complication [Unknown]
  - Contusion [Unknown]
  - Pain in extremity [Unknown]
